FAERS Safety Report 9995383 (Version 1)
Quarter: 2014Q1

REPORT INFORMATION
  Report Type: Spontaneous
  Country: US (occurrence: None)
  Receive Date: 20140306
  Receipt Date: 20140306
  Transmission Date: 20141002
  Serious: Yes (Hospitalization)
  Sender: FDA-Public Use
  Company Number: UTC-045297

PATIENT
  Age: 73 Year
  Sex: Male

DRUGS (3)
  1. TYVASO (6 MICROGRAM, AEROSOL FOR INHALATION) (TREPROSTINIL SODIUM) [Suspect]
     Indication: COR PULMONALE CHRONIC
     Dosage: 18-72 MCG (4 IN 1 D)
     Route: 055
     Dates: start: 20130124
  2. ADCIRCA (TADALAFIL) [Concomitant]
  3. TRACLEER (BOSSENTAN) [Concomitant]

REACTIONS (2)
  - Haemoglobin decreased [None]
  - Gastrointestinal haemorrhage [None]
